FAERS Safety Report 4340150-1 (Version None)
Quarter: 2004Q2

REPORT INFORMATION
  Report Type: 
  Country: None (occurrence: None)
  Receive Date: 20040416
  Receipt Date: 20040416
  Transmission Date: 20050107
  Serious: Yes (Other)
  Sender: FDA-Public Use
  Company Number: None

PATIENT
  Age: 62 Year
  Sex: Female
  Weight: 95 kg

DRUGS (3)
  1. TPN SUSPENSION [Suspect]
     Indication: GASTRIC OUTLET OBSTRUCTION
     Dosage: 1000 ML IV OVER 12 H
     Route: 042
     Dates: start: 20040312, end: 20040415
  2. PEPCID [Concomitant]
  3. M.V.I. [Concomitant]

REACTIONS (2)
  - IMPLANT SITE REACTION [None]
  - SWELLING [None]
